FAERS Safety Report 5055429-8 (Version None)
Quarter: 2006Q3

REPORT INFORMATION
  Report Type: 
  Country: None (occurrence: None)
  Receive Date: 20060714
  Receipt Date: 20060628
  Transmission Date: 20061208
  Serious: Yes (Hospitalization)
  Sender: FDA-Public Use
  Company Number: FR200603006457

PATIENT
  Age: 58 Year
  Sex: Male
  Weight: 65 kg

DRUGS (6)
  1. ZYPREXA [Suspect]
     Indication: BIPOLAR DISORDER
     Dosage: SEE IMAGE
     Route: 048
     Dates: start: 20041007, end: 20060306
  2. ZYPREXA [Suspect]
     Indication: BIPOLAR DISORDER
     Dosage: SEE IMAGE
     Route: 048
     Dates: start: 20060317
  3. AMITRIPTYLINE HCL [Concomitant]
  4. IMOVANE (ZOPICLONE) [Concomitant]
  5. KALETRA [Concomitant]
  6. COMBIVIR [Concomitant]

REACTIONS (1)
  - MYOCARDIAL INFARCTION [None]
